FAERS Safety Report 25617303 (Version 1)
Quarter: 2025Q3

REPORT INFORMATION
  Report Type: Spontaneous
  Country: US (occurrence: US)
  Receive Date: 20250729
  Receipt Date: 20250729
  Transmission Date: 20251021
  Serious: Yes (Life-Threatening, Hospitalization)
  Sender: MYLAN
  Company Number: US-MYLANLABS-2025M1063959

PATIENT
  Age: 49 Year
  Sex: Male

DRUGS (4)
  1. ARIPIPRAZOLE [Suspect]
     Active Substance: ARIPIPRAZOLE
     Indication: Anxiety
  2. VENLAFAXINE [Suspect]
     Active Substance: VENLAFAXINE HYDROCHLORIDE
     Indication: Anxiety
  3. CLOMIPRAMINE [Suspect]
     Active Substance: CLOMIPRAMINE
     Indication: Anxiety
  4. METAMUCIL [Concomitant]
     Active Substance: PLANTAGO SEED
     Indication: Constipation

REACTIONS (4)
  - Megacolon [Recovered/Resolved]
  - Haemodynamic instability [Recovered/Resolved]
  - Constipation [Recovered/Resolved]
  - Off label use [Unknown]
